FAERS Safety Report 9833333 (Version 2)
Quarter: 2014Q1

REPORT INFORMATION
  Report Type: Spontaneous
  Country: US (occurrence: US)
  Receive Date: 20140121
  Receipt Date: 20140121
  Transmission Date: 20141002
  Serious: No
  Sender: FDA-Public Use
  Company Number: US-GILEAD-2013-0087594

PATIENT
  Sex: Female

DRUGS (2)
  1. LETAIRIS [Suspect]
     Indication: PULMONARY HYPERTENSION
     Dosage: 5 MG, UNK
     Route: 048
     Dates: start: 20131002
  2. LETAIRIS [Suspect]
     Indication: DRUG THERAPY

REACTIONS (6)
  - Adverse drug reaction [Unknown]
  - Drug intolerance [Unknown]
  - Flushing [Unknown]
  - Headache [Unknown]
  - Oedema [Unknown]
  - Dyspnoea [Unknown]
